FAERS Safety Report 8309707-7 (Version None)
Quarter: 2012Q2

REPORT INFORMATION
  Report Type: 
  Country: None (occurrence: None)
  Receive Date: 20120425
  Receipt Date: 20120416
  Transmission Date: 20120825
  Serious: Yes (Hospitalization, Other)
  Sender: FDA-Public Use
  Company Number: US-ABBOTT-12P-163-0917680-00

PATIENT
  Sex: Female
  Weight: 88.076 kg

DRUGS (5)
  1. HUMIRA [Suspect]
     Dosage: 80 MG LOADING DOSE
     Dates: start: 20120222, end: 20120222
  2. IRON [Concomitant]
     Indication: PRODUCT USED FOR UNKNOWN INDICATION
  3. VITAMIN D [Concomitant]
     Indication: PRODUCT USED FOR UNKNOWN INDICATION
  4. HUMIRA [Suspect]
     Indication: CROHN'S DISEASE
     Dosage: 160 MG LOADING DOSE
  5. LISINOPRIL [Concomitant]
     Indication: HYPERTENSION
     Route: 048
     Dates: end: 20120301

REACTIONS (8)
  - GASTROINTESTINAL DISORDER [None]
  - IMPAIRED HEALING [None]
  - HAEMOGLOBIN DECREASED [None]
  - WHITE BLOOD CELL COUNT INCREASED [None]
  - PERITONEAL ABSCESS [None]
  - CROHN'S DISEASE [None]
  - PROCEDURAL PAIN [None]
  - APPENDIX DISORDER [None]
